FAERS Safety Report 5291834-2 (Version None)
Quarter: 2007Q2

REPORT INFORMATION
  Report Type: 
  Country: None (occurrence: None)
  Receive Date: 20070403
  Receipt Date: 20070326
  Transmission Date: 20071010
  Serious: Yes (Other)
  Sender: FDA-Public Use
  Company Number: 238910

PATIENT
  Age: 82 Year
  Sex: Female

DRUGS (5)
  1. LUCENTIS [Suspect]
     Dosage: INTRAVITREAL
     Dates: start: 20070101
  2. VITAMINS (VITAMINS NOS) [Concomitant]
  3. TOPROL-XL [Concomitant]
  4. DIOVAN [Concomitant]
  5. GLUCOPHAGE [Concomitant]

REACTIONS (3)
  - EYE HAEMORRHAGE [None]
  - OCULAR HYPERAEMIA [None]
  - VISION BLURRED [None]
